FAERS Safety Report 6216418-0 (Version None)
Quarter: 2009Q2

REPORT INFORMATION
  Report Type: 
  Country: None (occurrence: None)
  Receive Date: 20090605
  Receipt Date: 20090605
  Transmission Date: 20091009
  Serious: Yes (Other)
  Sender: FDA-Public Use
  Company Number: US-ABBOTT-09P-163-0575039-00

PATIENT
  Sex: Female
  Weight: 115.32 kg

DRUGS (14)
  1. HUMIRA [Suspect]
     Indication: RHEUMATOID ARTHRITIS
     Route: 058
     Dates: start: 20060101, end: 20070101
  2. HUMIRA [Suspect]
     Dosage: DISCONTINUED 2 WKS BEFORE KNEE REPLACEMENT
     Route: 058
     Dates: start: 20070101, end: 20070101
  3. HUMIRA [Suspect]
     Route: 058
     Dates: start: 20070101, end: 20081001
  4. HUMIRA [Suspect]
     Route: 058
     Dates: start: 20081001, end: 20090201
  5. HUMIRA [Suspect]
     Route: 058
     Dates: start: 20090201, end: 20090401
  6. HUMIRA [Suspect]
     Indication: RHEUMATOID ARTHRITIS
     Dosage: LAST 3 INJECTIONS
     Route: 058
     Dates: start: 20090401
  7. DARVOCET [Concomitant]
     Indication: PAIN
     Dosage: NOT REPORTED
  8. TOPROL-XL [Concomitant]
     Indication: HYPERTENSION
     Dosage: UNKNOWN
  9. VERELAN PM [Concomitant]
     Indication: HYPERTENSION
     Dosage: UNKNOWN
  10. SYNTHROID [Concomitant]
     Indication: HYPOTHYROIDISM
     Dosage: UNKNOWN
  11. GENERIC PRILOSEC [Concomitant]
     Indication: DRUG USE FOR UNKNOWN INDICATION
     Route: 048
  12. LYRICA [Concomitant]
     Indication: MYALGIA
     Dosage: UNKNOWN
  13. POTASSIUM CHLORIDE [Concomitant]
     Indication: DRUG USE FOR UNKNOWN INDICATION
     Dosage: UNKNOWN
  14. FEXOFENADINE [Concomitant]
     Indication: HYPERSENSITIVITY
     Dosage: UNKNOWN

REACTIONS (11)
  - ARTHRALGIA [None]
  - ARTHROPATHY [None]
  - DIARRHOEA [None]
  - DRUG INEFFECTIVE [None]
  - GAIT DISTURBANCE [None]
  - GASTROENTERITIS VIRAL [None]
  - INJECTION SITE VESICLES [None]
  - PAIN [None]
  - SWELLING [None]
  - VOMITING [None]
  - WEIGHT INCREASED [None]
